FAERS Safety Report 14781149 (Version 3)
Quarter: 2018Q3

REPORT INFORMATION
  Report Type: Spontaneous
  Country: US (occurrence: US)
  Receive Date: 20180419
  Receipt Date: 20180703
  Transmission Date: 20181010
  Serious: Yes (Death, Hospitalization)
  Sender: FDA-Public Use
  Company Number: US-VIFOR (INTERNATIONAL) INC.-VIT-2018-03522

PATIENT
  Age: 63 Year
  Sex: Female

DRUGS (26)
  1. AMITRIPTYLINE HYDROCHLORIDE. [Concomitant]
     Active Substance: AMITRIPTYLINE HYDROCHLORIDE
  2. GABAPENTIN. [Concomitant]
     Active Substance: GABAPENTIN
  3. PRILOSEC [Concomitant]
     Active Substance: OMEPRAZOLE MAGNESIUM
  4. FERROUS SULFATE. [Concomitant]
     Active Substance: FERROUS SULFATE
  5. MAPAP [Concomitant]
     Active Substance: ACETAMINOPHEN
  6. SENSIPAR [Concomitant]
     Active Substance: CINACALCET HYDROCHLORIDE
  7. PANTOPRAZOLE SODIUM SESQUIHYDRATE [Concomitant]
     Active Substance: PANTOPRAZOLE SODIUM
  8. VELTASSA [Suspect]
     Active Substance: PATIROMER
     Indication: HYPERKALAEMIA
     Route: 048
     Dates: start: 20170309
  9. PROPYLENE GLYCOL [Concomitant]
     Active Substance: PROPYLENE GLYCOL
  10. PARACETAMOL~~HYDROCODONE [Concomitant]
  11. RENVELA [Concomitant]
     Active Substance: SEVELAMER CARBONATE
  12. DICLOFENAC SODIUM. [Concomitant]
     Active Substance: DICLOFENAC SODIUM
  13. IPRATROPIUM BROMIDE. [Concomitant]
     Active Substance: IPRATROPIUM BROMIDE
  14. ATORVASTATIN CALCIUM. [Concomitant]
     Active Substance: ATORVASTATIN CALCIUM
  15. FOLIC ACID. [Concomitant]
     Active Substance: FOLIC ACID
  16. LEVEMIR [Concomitant]
     Active Substance: INSULIN DETEMIR
  17. LISINOPRIL. [Concomitant]
     Active Substance: LISINOPRIL
  18. METOPROLOL TARTRATE. [Concomitant]
     Active Substance: METOPROLOL TARTRATE
  19. AMLODIPINE BESILATE [Concomitant]
     Active Substance: AMLODIPINE BESYLATE
  20. BENZONATATE. [Concomitant]
     Active Substance: BENZONATATE
  21. LORAZEPAM. [Concomitant]
     Active Substance: LORAZEPAM
  22. ESCITALOPRAM OXALATE. [Concomitant]
     Active Substance: ESCITALOPRAM OXALATE
  23. FUROSEMIDE. [Concomitant]
     Active Substance: FUROSEMIDE
  24. LIDOCAINE. [Concomitant]
     Active Substance: LIDOCAINE
  25. ONDANSETRON HYDROCHLORIDE. [Concomitant]
     Active Substance: ONDANSETRON HYDROCHLORIDE
  26. ASCORBIC ACID. [Concomitant]
     Active Substance: ASCORBIC ACID

REACTIONS (2)
  - Pneumonia [Unknown]
  - Death [Fatal]

NARRATIVE: CASE EVENT DATE: 20180408
